APPROVED DRUG PRODUCT: HYDROXYZINE HYDROCHLORIDE
Active Ingredient: HYDROXYZINE HYDROCHLORIDE
Strength: 10MG
Dosage Form/Route: TABLET;ORAL
Application: A088540 | Product #001
Applicant: QUANTUM PHARMICS LTD
Approved: Oct 22, 1985 | RLD: No | RS: No | Type: DISCN